FAERS Safety Report 21419095 (Version 1)
Quarter: 2022Q4

REPORT INFORMATION
  Report Type: Spontaneous
  Country: JP (occurrence: JP)
  Receive Date: 20221006
  Receipt Date: 20221006
  Transmission Date: 20230112
  Serious: Yes (Death)
  Sender: FDA-Public Use
  Company Number: JP-DSJP-DSJ-2022-135511

PATIENT
  Age: 73 Year

DRUGS (1)
  1. EDOXABAN TOSYLATE [Suspect]
     Active Substance: EDOXABAN TOSYLATE
     Indication: Pulmonary embolism
     Dosage: UNK
     Route: 065

REACTIONS (9)
  - Carcinoembryonic antigen increased [Fatal]
  - Fibrin D dimer increased [Fatal]
  - Metastases to liver [Fatal]
  - Cerebral infarction [Fatal]
  - Malaise [Fatal]
  - Decreased appetite [Fatal]
  - Paralysis [Fatal]
  - Altered state of consciousness [Fatal]
  - Nervous system disorder [Fatal]
